FAERS Safety Report 6946853-4 (Version None)
Quarter: 2010Q3

REPORT INFORMATION
  Report Type: 
  Country: None (occurrence: None)
  Receive Date: 20100827
  Receipt Date: 20090816
  Transmission Date: 20110219
  Serious: No
  Sender: FDA-Public Use
  Company Number: US-ABBOTT-09P-163-0592236-00

PATIENT
  Sex: Female
  Weight: 54.48 kg

DRUGS (4)
  1. NIASPAN [Suspect]
     Indication: LOW DENSITY LIPOPROTEIN ABNORMAL
     Dates: start: 20060101
  2. NIASPAN [Suspect]
     Dates: end: 20090811
  3. ASPIRIN [Concomitant]
     Indication: PROPHYLAXIS
     Dosage: UNKNOWN
  4. BENICAR [Concomitant]
     Indication: HYPERTENSION
     Dosage: UNKNOWN

REACTIONS (2)
  - CONTUSION [None]
  - SYNCOPE [None]
